FAERS Safety Report 14414478 (Version 1)
Quarter: 2018Q1

REPORT INFORMATION
  Report Type: Report from Study
  Country: GB (occurrence: GB)
  Receive Date: 20180120
  Receipt Date: 20180120
  Transmission Date: 20180509
  Serious: Yes (Death)
  Sender: FDA-Public Use
  Company Number: GB-ROCHE-2058930

PATIENT

DRUGS (3)
  1. CISPLATIN. [Suspect]
     Active Substance: CISPLATIN
     Indication: GASTROOESOPHAGEAL CANCER
     Route: 042
  2. CAPECITABINE. [Suspect]
     Active Substance: CAPECITABINE
     Indication: GASTROOESOPHAGEAL CANCER
     Dosage: FOR 14 DAYS OF 21 DAY CYCLE
     Route: 048
  3. AMG 386 [Suspect]
     Active Substance: TREBANANIB
     Indication: GASTROOESOPHAGEAL CANCER
     Route: 042

REACTIONS (1)
  - Haematemesis [Fatal]
